FAERS Safety Report 15951820 (Version 1)
Quarter: 2019Q1

REPORT INFORMATION
  Report Type: Report from Study
  Country: US (occurrence: US)
  Receive Date: 20190212
  Receipt Date: 20190212
  Transmission Date: 20190417
  Serious: Yes (Hospitalization, Other)
  Sender: FDA-Public Use
  Company Number: US-EMD SERONO-9070739

PATIENT
  Age: 64 Year
  Sex: Male

DRUGS (1)
  1. REBIF [Suspect]
     Active Substance: INTERFERON BETA-1A
     Indication: PRODUCT USED FOR UNKNOWN INDICATION
     Route: 058
     Dates: start: 20130103

REACTIONS (4)
  - Influenza like illness [Unknown]
  - Renal disorder [Unknown]
  - Myocardial infarction [Unknown]
  - Liver disorder [Unknown]

NARRATIVE: CASE EVENT DATE: 201803
